FAERS Safety Report 24237686 (Version 3)
Quarter: 2024Q3

REPORT INFORMATION
  Report Type: Spontaneous
  Country: DE (occurrence: DE)
  Receive Date: 20240822
  Receipt Date: 20240906
  Transmission Date: 20241016
  Serious: Yes (Other)
  Sender: PFIZER
  Company Number: DE-PROCTER+GAMBLE-PH24005859

PATIENT
  Age: 82 Year
  Sex: Female
  Weight: 58 kg

DRUGS (8)
  1. FESOTERODINE [Suspect]
     Active Substance: FESOTERODINE
     Dosage: 1 TABLET, 1 /DAY (CERTAIN EXPOSURE, 1-0-0)
     Route: 048
     Dates: start: 20240713
  2. PANTOPRAZOLE [Suspect]
     Active Substance: PANTOPRAZOLE
     Dosage: 1 TABLET, 1 /DAY (CERTAIN EXPOSURE, +1/ 0-0-1), PANTOPRAZOLE 20
     Route: 048
     Dates: start: 20240713
  3. RAMIPRIL [Suspect]
     Active Substance: RAMIPRIL
     Dosage: 1 TABLET, 1 /DAY (CERTAIN EXPOSURE, 1-0-0), RAMIPRIL 2.5
     Route: 048
     Dates: start: 20240713
  4. CHOLECALCIFEROL [Suspect]
     Active Substance: CHOLECALCIFEROL
     Dosage: 1 TABLET, 1 /DAY (CERTAIN EXPOSURE, +1/0-0-1, THIS MORNING SHE TOOK HER ENTIRE DAILY DOSE)
     Route: 048
     Dates: start: 20240713
  5. AMOXICILLIN\CLAVULANATE POTASSIUM [Suspect]
     Active Substance: AMOXICILLIN\CLAVULANATE POTASSIUM
     Dosage: 1 TABLET, 2 /DAY (CERTAIN EXPOSURE, 1-0-1), AMOXICLAV 875 MG/125 MG
     Route: 048
     Dates: start: 20240713
  6. VITAMIN B COMPLEX [Suspect]
     Active Substance: CYANOCOBALAMIN\DEXPANTHENOL\NIACINAMIDE\PYRIDOXINE HYDROCHLORIDE\RIBOFLAVIN 5^-PHOSPHATE SODIUM\THIA
     Dosage: 1 TABLET, 1 /DAY (CERTAIN EXPOSURE, +1/ 0-0-1)
     Route: 048
     Dates: start: 20240713
  7. LITHIUM CARBONATE [Suspect]
     Active Substance: LITHIUM CARBONATE
     Dosage: 2 TABLET, 1 /DAY (EXPOSURE WITH TOXIN DETECTION, +2/0-0-2), 450 EXTENDED-RELEASE TABLETS
     Route: 048
     Dates: start: 20240713
  8. LEVOTHYROXINE SODIUM [Suspect]
     Active Substance: LEVOTHYROXINE SODIUM
     Dosage: 1 TABLET, 1 /DAY (CERTAIN EXPOSURE, 1-0-0),  I THYROXIN 50
     Route: 048
     Dates: start: 20240713

REACTIONS (9)
  - Pulmonary hypertension [Unknown]
  - Dehydration [Unknown]
  - Dysarthria [Unknown]
  - Dyspnoea [Unknown]
  - Drooling [Unknown]
  - Disorientation [Unknown]
  - Nausea [Unknown]
  - Muscle twitching [Unknown]
  - Vomiting [Unknown]

NARRATIVE: CASE EVENT DATE: 20240713
